FAERS Safety Report 12261732 (Version 1)
Quarter: 2016Q2

REPORT INFORMATION
  Report Type: Spontaneous
  Country: US (occurrence: US)
  Receive Date: 20160413
  Receipt Date: 20160413
  Transmission Date: 20160815
  Serious: Yes (Hospitalization)
  Sender: FDA-Public Use
  Company Number: US-EMD SERONO-7074814

PATIENT
  Sex: Male
  Weight: 79 kg

DRUGS (2)
  1. REBIF [Suspect]
     Active Substance: INTERFERON BETA-1A
     Route: 058
     Dates: start: 2011
  2. REBIF [Suspect]
     Active Substance: INTERFERON BETA-1A
     Indication: MULTIPLE SCLEROSIS
     Route: 058
     Dates: start: 20070714

REACTIONS (10)
  - Cystitis [Not Recovered/Not Resolved]
  - Colon cancer [Recovered/Resolved]
  - Muscular weakness [Unknown]
  - Mobility decreased [Not Recovered/Not Resolved]
  - Bladder disorder [Not Recovered/Not Resolved]
  - Diarrhoea [Not Recovered/Not Resolved]
  - Agitation [Not Recovered/Not Resolved]
  - Diplopia [Unknown]
  - Muscle spasms [Unknown]
  - Mood altered [Not Recovered/Not Resolved]

NARRATIVE: CASE EVENT DATE: 2009
